FAERS Safety Report 12053223 (Version 1)
Quarter: 2016Q1

REPORT INFORMATION
  Report Type: Report from Study
  Country: US (occurrence: US)
  Receive Date: 20160209
  Receipt Date: 20160209
  Transmission Date: 20160526
  Serious: No
  Sender: FDA-Public Use
  Company Number: US-ABBVIE-15P-163-1458068-00

PATIENT
  Age: 39 Year
  Sex: Female

DRUGS (1)
  1. HUMIRA [Suspect]
     Active Substance: ADALIMUMAB
     Indication: PSORIASIS
     Route: 065
     Dates: start: 20150805

REACTIONS (12)
  - Peripheral swelling [Not Recovered/Not Resolved]
  - Pustular psoriasis [Unknown]
  - Device issue [Unknown]
  - Drug dose omission [Unknown]
  - Heart rate increased [Unknown]
  - Joint swelling [Recovering/Resolving]
  - Drug effect incomplete [Unknown]
  - Joint swelling [Recovering/Resolving]
  - Wrong technique in product usage process [Unknown]
  - Chills [Recovered/Resolved]
  - White blood cell count increased [Recovering/Resolving]
  - Arthralgia [Recovering/Resolving]

NARRATIVE: CASE EVENT DATE: 20150825
